FAERS Safety Report 17013461 (Version 1)
Quarter: 2019Q4

REPORT INFORMATION
  Report Type: Spontaneous
  Country: US (occurrence: US)
  Receive Date: 20191001
  Receipt Date: 20191001
  Transmission Date: 20200122
  Serious: Yes (Hospitalization)
  Sender: FDA-Public Use
  Company Number: None

PATIENT
  Age: 33 Year
  Sex: Male
  Weight: 59.6 kg

DRUGS (1)
  1. INTRON A [Suspect]
     Active Substance: INTERFERON ALFA-2B
     Dates: end: 20130123

REACTIONS (7)
  - Metastatic malignant melanoma [None]
  - Pallor [None]
  - Disease progression [None]
  - Fatigue [None]
  - Anaemia [None]
  - Tachycardia [None]
  - Peritoneal haemorrhage [None]

NARRATIVE: CASE EVENT DATE: 20130211
